FAERS Safety Report 9181753 (Version 1)
Quarter: 2013Q1

REPORT INFORMATION
  Report Type: Spontaneous
  Country: US (occurrence: US)
  Receive Date: 20130322
  Receipt Date: 20130322
  Transmission Date: 20140127
  Serious: Yes (Other)
  Sender: FDA-Public Use
  Company Number: US-JNJFOC-20110805777

PATIENT
  Sex: Female

DRUGS (8)
  1. TOPAMAX [Suspect]
     Indication: MIGRAINE
     Route: 048
     Dates: start: 20021211, end: 20041209
  2. PRENATAL VITAMINS [Suspect]
     Indication: PRODUCT USED FOR UNKNOWN INDICATION
     Route: 065
  3. AMITRIPTYLINE [Suspect]
     Indication: PRODUCT USED FOR UNKNOWN INDICATION
     Route: 065
  4. INDERAL [Suspect]
     Indication: PRODUCT USED FOR UNKNOWN INDICATION
     Route: 065
  5. FIORICET [Suspect]
     Indication: HEADACHE
     Route: 065
  6. PHENERGAN [Suspect]
     Indication: NAUSEA
     Route: 048
  7. PHENERGAN [Suspect]
     Indication: NAUSEA
     Route: 054
  8. TYLENOL 3 [Suspect]
     Indication: MIGRAINE
     Route: 065

REACTIONS (3)
  - Placenta praevia [Unknown]
  - Exposure during pregnancy [Recovered/Resolved]
  - Emotional disorder [Unknown]
